FAERS Safety Report 8620697 (Version 4)
Quarter: 2012Q4

REPORT INFORMATION
  Report Type: 
  Country: JP (occurrence: JP)
  Receive Date: 20120618
  Receipt Date: 20121106
  Transmission Date: 20130627
  Serious: Yes (Hospitalization)
  Sender: FDA-Public Use
  Company Number: JP-MERCK-1206USA02101

PATIENT
  Age: 78 Year
  Sex: Female

DRUGS (5)
  1. GASTER [Suspect]
     Indication: GASTRITIS
     Dosage: 20 mg, qd
     Route: 048
     Dates: start: 201203, end: 20120524
  2. OLMETEC [Suspect]
     Indication: HYPERTENSION
     Dosage: 20 mg, qd
     Route: 048
     Dates: end: 20120524
  3. CRESTOR [Suspect]
     Indication: LIPIDS ABNORMAL
     Dosage: 2.5 mg, qd
     Route: 048
     Dates: end: 20120524
  4. BUFFERIN [Suspect]
     Indication: CEREBRAL INFARCTION
     Dosage: 8 mg, qd
     Route: 048
     Dates: end: 20120524
  5. NORVASC [Suspect]
     Indication: HYPERTENSION
     Dosage: 5 mg, qd
     Route: 048
     Dates: end: 20120524

REACTIONS (4)
  - Liver disorder [Recovering/Resolving]
  - Alanine aminotransferase increased [None]
  - Aspartate aminotransferase increased [None]
  - Gamma-glutamyltransferase increased [None]
